FAERS Safety Report 8075721-2 (Version None)
Quarter: 2012Q1

REPORT INFORMATION
  Report Type: 
  Country: None (occurrence: None)
  Receive Date: 20120125
  Receipt Date: 20120125
  Transmission Date: 20120608
  Serious: Yes (Death)
  Sender: FDA-Public Use
  Company Number: None

PATIENT
  Sex: Male
  Weight: 63.05 kg

DRUGS (8)
  1. MORPHINE [Concomitant]
  2. B COMPLEX/ B12 VITAMIN [Concomitant]
  3. LASIX [Concomitant]
  4. SUCRALFATE [Concomitant]
  5. HUMALOG [Concomitant]
  6. LANTUS [Concomitant]
  7. PROTONIX [Concomitant]
  8. LENALIDOMIDE [Suspect]
     Indication: HEPATIC NEOPLASM MALIGNANT
     Dosage: 20 MG DAILY/ORAL
     Route: 048
     Dates: start: 20111123, end: 20120109

REACTIONS (8)
  - BACTERIAL TEST POSITIVE [None]
  - CHOLANGITIS [None]
  - SEPSIS [None]
  - CHILLS [None]
  - NEOPLASM PROGRESSION [None]
  - DEVICE OCCLUSION [None]
  - PYREXIA [None]
  - LIVER ABSCESS [None]
